FAERS Safety Report 12248466 (Version 2)
Quarter: 2017Q3

REPORT INFORMATION
  Report Type: Spontaneous
  Country: RU (occurrence: RU)
  Receive Date: 20160408
  Receipt Date: 20170907
  Transmission Date: 20171127
  Serious: Yes (Death)
  Sender: FDA-Public Use
  Company Number: RU-BAYER-2016-066525

PATIENT
  Age: 57 Year
  Sex: Male

DRUGS (2)
  1. ULTRAVIST [Suspect]
     Active Substance: IOPROMIDE
     Indication: ACUTE MYOCARDIAL INFARCTION
     Dosage: UNK
     Route: 013
     Dates: start: 20151016, end: 20151016
  2. ULTRAVIST [Suspect]
     Active Substance: IOPROMIDE
     Indication: ARTERIOGRAM CORONARY

REACTIONS (13)
  - Acute kidney injury [Fatal]
  - Ventricular fibrillation [Fatal]
  - Cardio-respiratory arrest [Fatal]
  - Cardiovascular insufficiency [Fatal]
  - Arteriosclerosis coronary artery [Fatal]
  - Cardiogenic shock [Fatal]
  - Blood pressure decreased [Fatal]
  - Acute lung injury [Fatal]
  - Death [Fatal]
  - Adrenal insufficiency [Fatal]
  - Pancreatic failure [Fatal]
  - Brain oedema [Fatal]
  - Multiple organ dysfunction syndrome [Fatal]

NARRATIVE: CASE EVENT DATE: 20151016
